FAERS Safety Report 5020746-4 (Version None)
Quarter: 2006Q2

REPORT INFORMATION
  Report Type: 
  Country: None (occurrence: None)
  Receive Date: 20060606
  Receipt Date: 20060523
  Transmission Date: 20061013
  Serious: Yes (Hospitalization)
  Sender: FDA-Public Use
  Company Number: 2006BI007570

PATIENT
  Age: 52 Year
  Sex: Female
  Weight: 101.1521 kg

DRUGS (10)
  1. AVONEX [Suspect]
     Indication: MULTIPLE SCLEROSIS
     Dosage: 30 UG; QW; IM
     Route: 030
     Dates: start: 20000101, end: 20050501
  2. AVONEX [Suspect]
     Indication: MULTIPLE SCLEROSIS
     Dosage: 30 UG; QW; IM
     Route: 030
     Dates: start: 20050601
  3. FLEXERIL [Concomitant]
  4. FUROSEMIDE [Concomitant]
  5. POTASSIUM [Concomitant]
  6. GABAPENTIN [Concomitant]
  7. RITALIN [Concomitant]
  8. ASPIRIN [Concomitant]
  9. DIAZEPAM [Concomitant]
  10. PROZAC [Concomitant]

REACTIONS (23)
  - ABDOMINAL PAIN [None]
  - BACK DISORDER [None]
  - BALANCE DISORDER [None]
  - CATHETER RELATED COMPLICATION [None]
  - CONDITION AGGRAVATED [None]
  - DEPRESSION [None]
  - DEVICE FAILURE [None]
  - DEVICE RELATED INFECTION [None]
  - DRUG HYPERSENSITIVITY [None]
  - FALL [None]
  - GASTROOESOPHAGEAL REFLUX DISEASE [None]
  - HEMIPLEGIA [None]
  - HYPERTENSION [None]
  - INTERVERTEBRAL DISC PROTRUSION [None]
  - NEUROGENIC BLADDER [None]
  - PYREXIA [None]
  - RASH [None]
  - RESTLESS LEGS SYNDROME [None]
  - RHEUMATOID ARTHRITIS [None]
  - SCIATICA [None]
  - SLEEP DISORDER [None]
  - URINARY TRACT INFECTION [None]
  - VAGINAL INFECTION [None]
